FAERS Safety Report 5233899-X (Version None)
Quarter: 2007Q1

REPORT INFORMATION
  Report Type: 
  Country: None (occurrence: None)
  Receive Date: 20070208
  Receipt Date: 20070201
  Transmission Date: 20070707
  Serious: Yes (Other)
  Sender: FDA-Public Use
  Company Number: 2007UW02219

PATIENT
  Age: 67 Year
  Sex: Female
  Weight: 98.9 kg

DRUGS (10)
  1. ARIMIDEX [Suspect]
     Indication: BREAST CANCER STAGE III
     Route: 048
     Dates: start: 20051201
  2. VASOTEC [Concomitant]
  3. PROZAC [Concomitant]
  4. CIPRO [Concomitant]
  5. VELSCARE [Concomitant]
  6. HYDROCHLOROTHIAZIDE [Concomitant]
  7. CLONADINE [Concomitant]
  8. ASPIRIN [Concomitant]
  9. PULMICORT [Concomitant]
  10. EYE DROPS FOR GLAUCOMA [Concomitant]

REACTIONS (1)
  - MASS [None]
